FAERS Safety Report 5220915-4 (Version None)
Quarter: 2007Q1

REPORT INFORMATION
  Report Type: 
  Country: None (occurrence: None)
  Receive Date: 20070125
  Receipt Date: 20070125
  Transmission Date: 20070707
  Serious: Yes (Death, Hospitalization)
  Sender: FDA-Public Use
  Company Number: None

PATIENT
  Sex: Male
  Weight: 74.8435 kg

DRUGS (7)
  1. TINCTURE OF OPIUM [Suspect]
     Indication: DIARRHOEA
     Dosage: PO PRIOR TO ADMISSION
     Route: 048
  2. FENTANYL [Concomitant]
  3. KYTRIL [Concomitant]
  4. MORPHINE [Concomitant]
  5. REGLAN [Concomitant]
  6. PROTONIX [Concomitant]
  7. IMODIUM [Concomitant]

REACTIONS (3)
  - FLATULENCE [None]
  - OVERDOSE [None]
  - SMALL INTESTINAL OBSTRUCTION [None]
